FAERS Safety Report 9023984 (Version 2)
Quarter: 2013Q4

REPORT INFORMATION
  Report Type: Spontaneous
  Country: US (occurrence: US)
  Receive Date: 20130122
  Receipt Date: 20131101
  Transmission Date: 20140711
  Serious: No
  Sender: FDA-Public Use
  Company Number: US-009507513-1210USA011858

PATIENT
  Age: 16 Year
  Sex: Female
  Weight: 97.96 kg

DRUGS (2)
  1. IMPLANON [Suspect]
     Indication: CONTRACEPTION
     Dosage: 1 ROD UP TO 3 YEARS
     Route: 059
     Dates: start: 20110922
  2. ANTIMICROBIAL (UNSPECIFIED) [Concomitant]

REACTIONS (7)
  - Skin warm [Unknown]
  - Ovarian cyst [Unknown]
  - Weight increased [Unknown]
  - Vomiting [Unknown]
  - Pyrexia [Unknown]
  - Back pain [Unknown]
  - Menorrhagia [Unknown]
